FAERS Safety Report 8700001 (Version 2)
Quarter: 2012Q4

REPORT INFORMATION
  Report Type: 
  Country: US (occurrence: US)
  Receive Date: 20120802
  Receipt Date: 20121001
  Transmission Date: 20130627
  Serious: Yes (Hospitalization)
  Sender: FDA-Public Use
  Company Number: US-ROCHE-1094695

PATIENT
  Sex: Female

DRUGS (4)
  1. XOLAIR [Suspect]
     Indication: ASTHMA
  2. ADVAIR [Concomitant]
     Dosage: 500
     Route: 065
  3. SINGULAIR [Concomitant]
  4. ALBUTEROL INHALER [Concomitant]

REACTIONS (3)
  - Sinusitis [Unknown]
  - Malaise [Unknown]
  - Chronic sinusitis [Unknown]
